FAERS Safety Report 8247909-9 (Version None)
Quarter: 2012Q1

REPORT INFORMATION
  Report Type: 
  Country: None (occurrence: None)
  Receive Date: 20120330
  Receipt Date: 20120322
  Transmission Date: 20120608
  Serious: Yes (Other)
  Sender: FDA-Public Use
  Company Number: US-MERCK-1202USA03925

PATIENT
  Age: 69 Year
  Sex: Female
  Weight: 91 kg

DRUGS (10)
  1. LIPITOR [Suspect]
     Indication: BLOOD CHOLESTEROL INCREASED
     Route: 048
     Dates: start: 20111001
  2. LEVOXYL [Concomitant]
     Dosage: AS HER THYROID WAS REMOVED
     Route: 065
  3. CELEBREX [Suspect]
     Indication: POLYARTHRITIS
     Route: 065
     Dates: start: 20111201
  4. AMLODIPINE BESYLATE [Suspect]
     Route: 065
  5. NAPROXEN [Suspect]
     Indication: POLYARTHRITIS
     Route: 065
     Dates: end: 20111201
  6. LIPITOR [Suspect]
     Route: 048
  7. HYDROCHLOROTHIAZIDE [Concomitant]
     Indication: HYPERTENSION
     Route: 065
  8. HYDROCHLOROTHIAZIDE [Concomitant]
     Route: 065
  9. ZOCOR [Suspect]
     Indication: BLOOD CHOLESTEROL INCREASED
     Route: 048
     Dates: end: 20111001
  10. AMLODIPINE BESYLATE [Suspect]
     Indication: PULMONARY HYPERTENSION
     Route: 065
     Dates: end: 20110101

REACTIONS (4)
  - JOINT SWELLING [None]
  - DYSPNOEA [None]
  - CENTRAL NERVOUS SYSTEM LESION [None]
  - PULMONARY HYPERTENSION [None]
